FAERS Safety Report 9149050 (Version 2)
Quarter: 2013Q1

REPORT INFORMATION
  Report Type: Spontaneous
  Country: VE (occurrence: VE)
  Receive Date: 20130308
  Receipt Date: 20130320
  Transmission Date: 20140127
  Serious: Yes (Other)
  Sender: FDA-Public Use
  Company Number: VE-PFIZER INC-2013077864

PATIENT
  Age: 78 Year
  Sex: Male

DRUGS (5)
  1. ZOLOFT [Suspect]
     Indication: DEPRESSION
     Dosage: 100 MG, 1X/DAY
     Route: 048
     Dates: start: 1997
  2. DIOVAN HCT [Concomitant]
     Indication: HYPERTENSION
     Dosage: 160 MG/12.5 MG, ONCE DAILY
     Route: 048
  3. ASPIRINA [Concomitant]
     Indication: ARRHYTHMIA
     Dosage: 81 MG, 1X/DAY
     Route: 048
  4. CONCOR [Concomitant]
     Indication: HYPERTENSION
     Dosage: 30 MG, 1X/DAY
     Route: 048
  5. GLUCOFAGE [Concomitant]
     Indication: DIABETES MELLITUS
     Dosage: 500 MG, 1X/DAY
     Route: 048

REACTIONS (3)
  - Cerebrovascular accident [Recovered/Resolved with Sequelae]
  - Bladder cancer [Not Recovered/Not Resolved]
  - Throat cancer [Not Recovered/Not Resolved]
